FAERS Safety Report 19381430 (Version 4)
Quarter: 2021Q3

REPORT INFORMATION
  Report Type: Spontaneous
  Country: JP (occurrence: JP)
  Receive Date: 20210607
  Receipt Date: 20210728
  Transmission Date: 20211014
  Serious: Yes (Hospitalization, Other)
  Sender: FDA-Public Use
  Company Number: JP-MYLANLABS-2021M1014212

PATIENT
  Age: 74 Year
  Sex: Female
  Weight: 66 kg

DRUGS (2)
  1. CARBOPLATIN INJ. 50MG ^NK^ [Suspect]
     Active Substance: CARBOPLATIN
     Indication: UTERINE CANCER
     Dosage: 450 MILLIGRAM, QD
     Route: 041
     Dates: start: 20210302, end: 20210302
  2. PACLITAXEL. [Suspect]
     Active Substance: PACLITAXEL
     Indication: UTERINE CANCER
     Dosage: 270 MILLIGRAM, QD
     Route: 041
     Dates: start: 20210302, end: 20210302

REACTIONS (2)
  - Arthralgia [Recovering/Resolving]
  - Hepatic function abnormal [Recovering/Resolving]

NARRATIVE: CASE EVENT DATE: 20210303
